FAERS Safety Report 5031634-1 (Version None)
Quarter: 2006Q2

REPORT INFORMATION
  Report Type: 
  Country: None (occurrence: None)
  Receive Date: 20060616
  Receipt Date: 20060606
  Transmission Date: 20061013
  Serious: Yes (Hospitalization)
  Sender: FDA-Public Use
  Company Number: 2006BI005200

PATIENT
  Age: 49 Year
  Sex: Female

DRUGS (8)
  1. AVONEX [Suspect]
     Indication: MULTIPLE SCLEROSIS
     Dates: start: 20040201, end: 20060101
  2. AVONEX [Suspect]
     Indication: MULTIPLE SCLEROSIS
     Dates: start: 20060101
  3. ANTI-DEPRESSANTS [Concomitant]
  4. BRONCHODILATORS [Concomitant]
  5. VISTARIL [Concomitant]
  6. CHLORAL HYDRATE [Concomitant]
  7. RESTORIL [Concomitant]
  8. AMBIEN [Concomitant]

REACTIONS (5)
  - ANXIETY [None]
  - BEREAVEMENT [None]
  - BIPOLAR DISORDER [None]
  - CONDITION AGGRAVATED [None]
  - DRUG WITHDRAWAL SYNDROME [None]
